FAERS Safety Report 9656473 (Version 1)
Quarter: 2013Q4

REPORT INFORMATION
  Report Type: Spontaneous
  Country: ES (occurrence: None)
  Receive Date: 20131028
  Receipt Date: 20131028
  Transmission Date: 20140711
  Serious: Yes (Other)
  Sender: FDA-Public Use
  Company Number: 2013-003325

PATIENT
  Sex: Female

DRUGS (1)
  1. RISEDRONATE SODIUM [Suspect]
     Dosage: 150 MG, UNSPECIFIED FREQUENCY, ORAL
     Route: 048
     Dates: start: 2013

REACTIONS (6)
  - Pyrexia [None]
  - Hypotension [None]
  - Chills [None]
  - Headache [None]
  - Dizziness [None]
  - Myalgia [None]
